FAERS Safety Report 23064763 (Version 1)
Quarter: 2023Q4

REPORT INFORMATION
  Report Type: Spontaneous
  Country: US (occurrence: US)
  Receive Date: 20231013
  Receipt Date: 20231013
  Transmission Date: 20240109
  Serious: Yes (Hospitalization, Other)
  Sender: FDA-Public Use
  Company Number: US-FreseniusKabi-FK202316264

PATIENT
  Age: 32 Year
  Sex: Male

DRUGS (4)
  1. FLUOROURACIL [Suspect]
     Active Substance: FLUOROURACIL
     Indication: Colon cancer
     Dosage: CONTINUOUS INFUSION
  2. ENOXAPARIN [Concomitant]
     Active Substance: ENOXAPARIN
     Indication: Pulmonary embolism
  3. OXALIPLATIN [Concomitant]
     Active Substance: OXALIPLATIN
     Indication: Colon cancer stage III
     Dosage: NEO-ADJUVANT CHEMOTHERAPY, ONE WEEK AGO
  4. LEUCOVORIN [Concomitant]
     Active Substance: LEUCOVORIN\LEUCOVORIN CALCIUM
     Indication: Colon cancer stage III
     Dosage: NEO-ADJUVANT CHEMOTHERAPY, ONE WEEK AGO

REACTIONS (2)
  - Cardiac arrest [Unknown]
  - Arteriospasm coronary [Unknown]
